FAERS Safety Report 5529112-6 (Version None)
Quarter: 2007Q4

REPORT INFORMATION
  Report Type: 
  Country: None (occurrence: None)
  Receive Date: 20071129
  Receipt Date: 20070103
  Transmission Date: 20080405
  Serious: No
  Sender: FDA-Public Use
  Company Number: A0633755A

PATIENT
  Age: 29 Year
  Sex: Male

DRUGS (4)
  1. WELLBUTRIN SR [Suspect]
     Indication: ANXIETY
     Dosage: 150MG TWICE PER DAY
     Route: 048
     Dates: start: 20060601
  2. ETHANOL [Suspect]
     Indication: DRUG USE FOR UNKNOWN INDICATION
     Route: 048
  3. TOPROL-XL [Concomitant]
  4. LISINOPRIL [Concomitant]

REACTIONS (4)
  - AFFECT LABILITY [None]
  - ALCOHOL INTERACTION [None]
  - AMNESIA [None]
  - ANGER [None]
